FAERS Safety Report 9121005 (Version 1)
Quarter: 2013Q1

REPORT INFORMATION
  Report Type: Spontaneous
  Country: US (occurrence: US)
  Receive Date: 20130226
  Receipt Date: 20130226
  Transmission Date: 20140127
  Serious: No
  Sender: FDA-Public Use
  Company Number: US-MYLANLABS-2012S1004807

PATIENT
  Age: 77 Year
  Sex: Male

DRUGS (5)
  1. HYDROCHLOROTHIAZIDE CAPSULES [Suspect]
     Indication: BLOOD PRESSURE INCREASED
     Route: 048
     Dates: start: 2010
  2. METFORMIN [Concomitant]
  3. RAMIPRIL [Concomitant]
  4. ATORVASTATIN [Concomitant]
  5. GLIMEPIRIDE [Concomitant]

REACTIONS (2)
  - Glycosylated haemoglobin increased [Not Recovered/Not Resolved]
  - Muscle spasms [Not Recovered/Not Resolved]
